FAERS Safety Report 18254112 (Version 3)
Quarter: 2022Q3

REPORT INFORMATION
  Report Type: Spontaneous
  Country: US (occurrence: US)
  Receive Date: 20200910
  Receipt Date: 20220722
  Transmission Date: 20221027
  Serious: Yes (Other)
  Sender: FDA-Public Use
  Company Number: US-TAKEDA-2020TUS038015

PATIENT
  Sex: Female
  Weight: 73 kg

DRUGS (2)
  1. NINLARO [Suspect]
     Active Substance: IXAZOMIB CITRATE
     Indication: Plasma cell myeloma
     Dosage: UNK
     Route: 065
  2. NINLARO [Suspect]
     Active Substance: IXAZOMIB CITRATE
     Dosage: 3 MILLIGRAM, 1/WEEK
     Route: 065
     Dates: start: 2021

REACTIONS (4)
  - Osteonecrosis of jaw [Unknown]
  - Light chain analysis increased [Unknown]
  - Bone lesion [Unknown]
  - Drug ineffective [Unknown]
